FAERS Safety Report 8949691 (Version 2)
Quarter: 2013Q3

REPORT INFORMATION
  Report Type: Report from Study
  Country: JP (occurrence: JP)
  Receive Date: 20121206
  Receipt Date: 20130709
  Transmission Date: 20140515
  Serious: Yes (Other)
  Sender: FDA-Public Use
  Company Number: JP-VERTEX PHARMACEUTICALS INC.-2012-025663

PATIENT
  Age: 58 Year
  Sex: Male

DRUGS (31)
  1. VX-950 (TELAPREVIR) [Suspect]
     Indication: CHRONIC HEPATITIS C
     Dosage: 2250 MG, QD
     Route: 048
     Dates: start: 20120507, end: 20120525
  2. VX-950 (TELAPREVIR) [Suspect]
     Dosage: 1500 MG, QD
     Route: 048
     Dates: start: 20120526, end: 20120701
  3. VX-950 (TELAPREVIR) [Suspect]
     Dosage: 1000 MG, QD
     Route: 048
     Dates: start: 20120702, end: 20120719
  4. VX-950 (TELAPREVIR) [Suspect]
     Dosage: 750 MG, QD
     Route: 048
     Dates: start: 20120720, end: 20120729
  5. PEGINTRON [Suspect]
     Indication: CHRONIC HEPATITIS C
     Dosage: 1.5 ?G/KG, QW
     Route: 058
     Dates: start: 20120507, end: 20120717
  6. PEGINTRON [Suspect]
     Dosage: 1.2 ?G/KG, QW
     Route: 058
     Dates: start: 20120723, end: 20120805
  7. RIBAVIRIN [Suspect]
     Indication: CHRONIC HEPATITIS C
     Dosage: 800 MG, QD
     Route: 048
     Dates: start: 20120507, end: 20120528
  8. RIBAVIRIN [Suspect]
     Dosage: 600 MG, QD
     Route: 048
     Dates: start: 20120529, end: 20120603
  9. RIBAVIRIN [Suspect]
     Dosage: 400 MG, QD
     Route: 048
     Dates: start: 20120604, end: 20120604
  10. RIBAVIRIN [Suspect]
     Dosage: 200 MG, QD
     Route: 048
     Dates: start: 20120605, end: 20120910
  11. GLAKAY [Concomitant]
     Dosage: 45 MG, QD
     Route: 048
  12. TAKEPRON [Concomitant]
     Dosage: 15 MG, QD
     Route: 048
  13. ALDACTONE A [Concomitant]
     Dosage: 25 MG, QD
     Route: 048
     Dates: end: 20120720
  14. ALDACTONE A [Concomitant]
     Dosage: UNK
     Route: 048
  15. TSUMURA RIKKUNSHITO EXRACT FINE GRANULES FOR ETHICAL USE [Concomitant]
     Dosage: 7.5 G, QD
     Route: 048
     Dates: start: 20120507, end: 20120511
  16. VOLTAREN [Concomitant]
     Dosage: 1 DF, PRN
     Route: 054
     Dates: start: 20120507, end: 20120910
  17. TSUMURA SHAKUYAKU KANZO TO EXTRACT GRANULES FOR ETHICAL USE [Concomitant]
     Dosage: 3 DF, QD
     Route: 048
     Dates: start: 20120511, end: 20120909
  18. LOPEMIN [Concomitant]
     Dosage: 2 MG, QD
     Route: 048
     Dates: start: 20120618
  19. LOPEMIN [Concomitant]
     Dosage: 2 MG, QD
     Route: 048
     Dates: start: 20120709
  20. LOPEMIN [Concomitant]
     Dosage: 2 MG, QD
     Route: 048
     Dates: end: 20120826
  21. ELENTAL [Concomitant]
     Dosage: 1 DF, QD
     Route: 048
     Dates: start: 20120704, end: 20120909
  22. PREDONINE [Concomitant]
     Dosage: 20 MG, QD
     Route: 048
     Dates: start: 20120709, end: 20120716
  23. PREDONINE [Concomitant]
     Dosage: 15 MG, QD
     Route: 048
     Dates: start: 20120717, end: 20120722
  24. PREDONINE [Concomitant]
     Dosage: 10 MG, QD
     Route: 048
     Dates: start: 20120723, end: 20120729
  25. PREDONINE [Concomitant]
     Dosage: 5 MG, QD
     Route: 048
     Dates: start: 20120730, end: 20120812
  26. LUNESTA [Concomitant]
     Dosage: 2 MG, QD
     Route: 048
     Dates: start: 20120702, end: 20120819
  27. EURAX H [Concomitant]
     Dosage: UNK, QD
     Route: 061
     Dates: start: 20120702
  28. DEPAS [Concomitant]
     Dosage: 0.5 MG, PRN
     Route: 048
     Dates: end: 20120820
  29. FERON [Concomitant]
     Dosage: 600 DF
     Route: 042
     Dates: start: 20120806, end: 20120910
  30. GASMOTIN [Concomitant]
     Dosage: 15 MG, QD
     Route: 048
     Dates: start: 20120702
  31. ZYLORIC [Concomitant]
     Dosage: 100 MG, QD
     Route: 048
     Dates: end: 20120812

REACTIONS (1)
  - Renal impairment [Recovered/Resolved]
